FAERS Safety Report 12811938 (Version 1)
Quarter: 2016Q4

REPORT INFORMATION
  Report Type: Spontaneous
  Country: US (occurrence: US)
  Receive Date: 20161005
  Receipt Date: 20161005
  Transmission Date: 20170207
  Serious: No
  Sender: FDA-Public Use
  Company Number: US-AMGEN-USASP2016065157

PATIENT
  Age: 62 Year
  Sex: Female

DRUGS (2)
  1. PROLIA [Suspect]
     Active Substance: DENOSUMAB
     Indication: PRODUCT USED FOR UNKNOWN INDICATION
     Dosage: UNK
     Route: 065
     Dates: start: 20160429
  2. HYDROCODONE [Suspect]
     Active Substance: HYDROCODONE
     Indication: UNEVALUABLE EVENT
     Route: 065

REACTIONS (8)
  - Pain in extremity [Recovered/Resolved]
  - Neck pain [Unknown]
  - Peripheral swelling [Recovered/Resolved]
  - Pain in jaw [Unknown]
  - Breast pain [Unknown]
  - Dyspepsia [Recovered/Resolved]
  - Burning sensation [Recovered/Resolved]
  - Pain [Unknown]

NARRATIVE: CASE EVENT DATE: 201605
